FAERS Safety Report 17367910 (Version 1)
Quarter: 2020Q1

REPORT INFORMATION
  Report Type: Spontaneous
  Country: US (occurrence: US)
  Receive Date: 20200131
  Receipt Date: 20200131
  Transmission Date: 20200409
  Serious: Yes (Life-Threatening, Other)
  Sender: FDA-Public Use
  Company Number: None

PATIENT
  Age: 49 Year
  Sex: Male
  Weight: 104.33 kg

DRUGS (1)
  1. HEPARIN [Suspect]
     Active Substance: HEPARIN SODIUM

REACTIONS (7)
  - Device related thrombosis [None]
  - Complication associated with device [None]
  - Medical device change [None]
  - Paradoxical drug reaction [None]
  - Local reaction [None]
  - Thrombosis [None]
  - Drug hypersensitivity [None]

NARRATIVE: CASE EVENT DATE: 20190615
